FAERS Safety Report 20115420 (Version 1)
Quarter: 2021Q4

REPORT INFORMATION
  Report Type: Spontaneous
  Country: IT (occurrence: IT)
  Receive Date: 20211126
  Receipt Date: 20211126
  Transmission Date: 20220303
  Serious: Yes (Other)
  Sender: FDA-Public Use
  Company Number: None

PATIENT
  Age: 64 Year
  Sex: Male
  Weight: 58 kg

DRUGS (1)
  1. NIVOLUMAB [Suspect]
     Active Substance: NIVOLUMAB
     Indication: Malignant melanoma
     Dosage: 480 MILLIGRAM
     Route: 065
     Dates: start: 20181112, end: 20210917

REACTIONS (11)
  - Glossitis [Recovering/Resolving]
  - Pyrexia [Recovering/Resolving]
  - Stomatitis [Recovering/Resolving]
  - Dysphagia [Recovering/Resolving]
  - Weight decreased [Recovering/Resolving]
  - Conjunctivitis [Recovering/Resolving]
  - Blepharitis [Recovering/Resolving]
  - Odynophagia [Recovering/Resolving]
  - Cheilitis [Recovering/Resolving]
  - Rash papular [Recovering/Resolving]
  - Palmar-plantar erythrodysaesthesia syndrome [Recovering/Resolving]

NARRATIVE: CASE EVENT DATE: 20211001
